FAERS Safety Report 9457295 (Version 1)
Quarter: 2013Q3

REPORT INFORMATION
  Report Type: Spontaneous
  Country: GB (occurrence: GB)
  Receive Date: 20130814
  Receipt Date: 20130814
  Transmission Date: 20140515
  Serious: Yes (Other)
  Sender: FDA-Public Use
  Company Number: PHFR2013GB004300

PATIENT
  Age: 50 Year
  Sex: Male

DRUGS (2)
  1. CLOZARIL [Suspect]
     Indication: SCHIZOPHRENIA
     Dosage: UNK
     Route: 048
     Dates: start: 20070403
  2. CLOZARIL [Suspect]
     Dosage: UNK

REACTIONS (6)
  - Mean cell volume decreased [Unknown]
  - Eosinophil count increased [Recovered/Resolved]
  - Differential white blood cell count abnormal [Recovered/Resolved]
  - White blood cell count increased [Recovered/Resolved]
  - Neutrophil count increased [Recovered/Resolved]
  - Lower respiratory tract infection [Recovered/Resolved]
